FAERS Safety Report 9522470 (Version 1)
Quarter: 2013Q3

REPORT INFORMATION
  Report Type: Report from Study
  Country: US (occurrence: US)
  Receive Date: 20130913
  Receipt Date: 20130913
  Transmission Date: 20140515
  Serious: Yes (Hospitalization)
  Sender: FDA-Public Use
  Company Number: US-ABBOTT-13P-163-1143731-00

PATIENT
  Age: 41 Year
  Sex: Female
  Weight: 49.94 kg

DRUGS (14)
  1. HUMIRA [Suspect]
     Indication: CROHN^S DISEASE
     Dates: start: 201204
  2. HUMIRA [Suspect]
     Indication: RHEUMATOID ARTHRITIS
  3. COUMADIN [Suspect]
     Indication: VENA CAVA THROMBOSIS
     Dates: start: 201303, end: 201307
  4. KLONOPIN [Concomitant]
     Indication: ANXIETY
  5. PAMELOR [Concomitant]
     Indication: DEPRESSION
  6. REMERON [Concomitant]
     Indication: DEPRESSION
  7. BACLOFEN [Concomitant]
     Indication: MUSCLE SPASMS
  8. METHOTREXATE [Concomitant]
     Indication: CROHN^S DISEASE
  9. FOLIC ACID [Concomitant]
     Indication: VITAMIN SUPPLEMENTATION
  10. PROTONIX [Concomitant]
     Indication: CROHN^S DISEASE
  11. PAMINE [Concomitant]
     Indication: CROHN^S DISEASE
  12. POTASSIUM [Concomitant]
     Indication: HYPOKALAEMIA
  13. DILAUDID [Concomitant]
     Indication: PAIN
  14. PHENERGAN [Concomitant]
     Indication: NAUSEA

REACTIONS (8)
  - Oedema [Recovered/Resolved]
  - Vena cava thrombosis [Recovered/Resolved]
  - Cardiac failure congestive [Recovering/Resolving]
  - Nausea [Recovered/Resolved]
  - Diarrhoea [Recovered/Resolved]
  - Oropharyngeal pain [Recovering/Resolving]
  - Cough [Not Recovered/Not Resolved]
  - Dyspnoea [Recovered/Resolved]
